FAERS Safety Report 6599026-1 (Version None)
Quarter: 2010Q1

REPORT INFORMATION
  Report Type: 
  Country: None (occurrence: None)
  Receive Date: 20100224
  Receipt Date: 20090702
  Transmission Date: 20100710
  Serious: No
  Sender: FDA-Public Use
  Company Number: US-BRISTOL-MYERS SQUIBB COMPANY-14684740

PATIENT
  Age: 56 Year
  Sex: Female

DRUGS (11)
  1. GLUCOPHAGE [Suspect]
     Indication: DIABETES MELLITUS
     Dosage: 1 DF = 1 TAB
     Route: 048
     Dates: start: 20040827
  2. MONOPRIL-HCT [Suspect]
  3. AMARYL [Suspect]
  4. ACTOS [Suspect]
  5. JANUVIA [Suspect]
  6. ZOCOR [Suspect]
     Indication: HYPERLIPIDAEMIA
     Dates: start: 20041119
  7. ARTHROTEC [Suspect]
  8. ALLEGRA [Suspect]
  9. ASPIRIN [Suspect]
  10. CALCIUM + VITAMIN D [Suspect]
  11. FISH OIL [Suspect]

REACTIONS (1)
  - ALOPECIA [None]
